FAERS Safety Report 6715705-7 (Version None)
Quarter: 2010Q2

REPORT INFORMATION
  Report Type: 
  Country: None (occurrence: None)
  Receive Date: 20100507
  Receipt Date: 20100326
  Transmission Date: 20101027
  Serious: Yes (Life-Threatening, Other)
  Sender: FDA-Public Use
  Company Number: US-BAXTER-2009BH018167

PATIENT
  Age: 44 Year
  Sex: Female
  Weight: 66 kg

DRUGS (17)
  1. HEPARIN SODIUM INJECTION [Suspect]
     Indication: CATHETERISATION CARDIAC
     Route: 042
     Dates: start: 20080103, end: 20080103
  2. HEPARIN SODIUM INJECTION [Suspect]
     Indication: CORONARY ARTERY BYPASS
     Route: 042
     Dates: start: 20080103, end: 20080103
  3. HEPARIN SODIUM INJECTION [Suspect]
     Route: 042
     Dates: start: 20080103, end: 20080103
  4. HEPARIN SODIUM INJECTION [Suspect]
     Route: 042
     Dates: start: 20080103, end: 20080103
  5. HEPARIN SODIUM INJECTION [Suspect]
     Route: 042
     Dates: start: 20080103, end: 20080103
  6. HEPARIN SODIUM INJECTION [Suspect]
     Route: 042
     Dates: start: 20080103, end: 20080103
  7. HEPARIN SODIUM INJECTION [Suspect]
     Route: 042
     Dates: start: 20080107, end: 20080108
  8. HEPARIN SODIUM INJECTION [Suspect]
     Route: 042
     Dates: start: 20080107, end: 20080108
  9. HEPARIN SODIUM INJECTION [Suspect]
     Route: 042
     Dates: start: 20080107
  10. HEPARIN SODIUM INJECTION [Suspect]
     Route: 042
     Dates: start: 20080107
  11. HEPARIN SODIUM INJECTION [Suspect]
     Route: 042
     Dates: start: 20080108
  12. HEPARIN SODIUM INJECTION [Suspect]
     Route: 042
     Dates: start: 20080108
  13. DOCUSATE [Concomitant]
     Indication: DRUG USE FOR UNKNOWN INDICATION
     Route: 065
  14. ACETAMINOPHEN [Concomitant]
     Indication: DRUG USE FOR UNKNOWN INDICATION
     Route: 065
  15. BISACODYL [Concomitant]
     Indication: DRUG USE FOR UNKNOWN INDICATION
     Route: 065
  16. VERSED [Concomitant]
     Indication: DRUG USE FOR UNKNOWN INDICATION
     Route: 065
  17. DEMEROL [Concomitant]
     Indication: DRUG USE FOR UNKNOWN INDICATION
     Route: 065

REACTIONS (27)
  - ANAEMIA [None]
  - ATRIAL FLUTTER [None]
  - DELIRIUM [None]
  - DYSPHAGIA [None]
  - GAIT DISTURBANCE [None]
  - GANGRENE [None]
  - HAEMODYNAMIC INSTABILITY [None]
  - HEPARIN-INDUCED THROMBOCYTOPENIA [None]
  - HEPATIC FAILURE [None]
  - HYPOTENSION [None]
  - ISCHAEMIA [None]
  - ISCHAEMIC HEPATITIS [None]
  - LACTIC ACIDOSIS [None]
  - MALNUTRITION [None]
  - METABOLIC ACIDOSIS [None]
  - METABOLIC ENCEPHALOPATHY [None]
  - PLEURAL EFFUSION [None]
  - PNEUMONIA [None]
  - PNEUMOTHORAX [None]
  - RENAL FAILURE [None]
  - RESPIRATORY FAILURE [None]
  - SEPSIS [None]
  - SERRATIA INFECTION [None]
  - SHOCK [None]
  - STAPHYLOCOCCAL INFECTION [None]
  - SUPRAVENTRICULAR TACHYCARDIA [None]
  - UNRESPONSIVE TO STIMULI [None]
